FAERS Safety Report 9188196 (Version 1)
Quarter: 2013Q1

REPORT INFORMATION
  Report Type: Spontaneous
  Country: US (occurrence: US)
  Receive Date: 20130325
  Receipt Date: 20130325
  Transmission Date: 20140127
  Serious: Yes (Other)
  Sender: FDA-Public Use
  Company Number: US-ASTRAZENECA-2013SE18186

PATIENT
  Age: 73 Year
  Sex: Male
  Weight: 73.9 kg

DRUGS (7)
  1. ATENOLOL [Suspect]
     Indication: HEART RATE DECREASED
     Dosage: UNKNOWN DOSE DAILY
     Route: 048
  2. CRESTOR [Suspect]
     Indication: BLOOD CHOLESTEROL INCREASED
     Route: 048
     Dates: end: 2012
  3. CRESTOR [Suspect]
     Indication: BLOOD CHOLESTEROL INCREASED
     Route: 048
     Dates: start: 2012, end: 2012
  4. CRESTOR [Suspect]
     Indication: BLOOD CHOLESTEROL INCREASED
     Route: 048
     Dates: start: 201212
  5. RANITIDINE [Suspect]
     Indication: BARRETT^S OESOPHAGUS
  6. ZETIA [Concomitant]
     Indication: BLOOD CHOLESTEROL ABNORMAL
     Route: 048
  7. ASPIRIN [Concomitant]
     Indication: ANTICOAGULANT THERAPY
     Route: 048

REACTIONS (6)
  - Heart rate increased [Unknown]
  - Aortic aneurysm [Unknown]
  - Barrett^s oesophagus [Unknown]
  - Muscle spasms [Recovered/Resolved]
  - Muscle spasms [Recovered/Resolved]
  - Off label use [Unknown]
